FAERS Safety Report 4738496-8 (Version None)
Quarter: 2005Q3

REPORT INFORMATION
  Report Type: 
  Country: None (occurrence: None)
  Receive Date: 20050809
  Receipt Date: 20050616
  Transmission Date: 20060218
  Serious: Yes (Other)
  Sender: FDA-Public Use
  Company Number: US-JNJFOC-20050604703

PATIENT
  Age: 17 Year
  Sex: Male

DRUGS (2)
  1. MOTRIN COLD AND SINUS [Suspect]
  2. MOTRIN COLD AND SINUS [Suspect]
     Indication: SINUS HEADACHE
     Dosage: 2 PRN 2-3X/WK FOR APPROXIMATELY 1 MONTH

REACTIONS (2)
  - COLITIS ULCERATIVE [None]
  - CROHN'S DISEASE [None]
